FAERS Safety Report 21551963 (Version 62)
Quarter: 2023Q4

REPORT INFORMATION
  Report Type: Report from Study
  Country: CN (occurrence: CN)
  Receive Date: 20221104
  Receipt Date: 20231129
  Transmission Date: 20240110
  Serious: Yes (Life-Threatening, Hospitalization, Other)
  Sender: FDA-Public Use
  Company Number: CN-SA-SAC20220930000616

PATIENT
  Age: 65 Year
  Sex: Male
  Weight: 71.5 kg

DRUGS (182)
  1. ISATUXIMAB [Suspect]
     Active Substance: ISATUXIMAB
     Indication: Plasma cell myeloma refractory
     Dosage: 39.05 MG
     Route: 042
     Dates: start: 20220922, end: 20220922
  2. ISATUXIMAB [Suspect]
     Active Substance: ISATUXIMAB
     Dosage: 800 MG
     Route: 042
     Dates: start: 20220923, end: 20220923
  3. ISATUXIMAB [Suspect]
     Active Substance: ISATUXIMAB
     Dosage: 800 MG (RATE AT 50, 100, 150, 200)
     Route: 042
     Dates: start: 20220929, end: 20220929
  4. ISATUXIMAB [Suspect]
     Active Substance: ISATUXIMAB
     Dosage: 800 MG (RATE AT 50, 150, 200)
     Route: 042
     Dates: start: 20221006, end: 20221006
  5. ISATUXIMAB [Suspect]
     Active Substance: ISATUXIMAB
     Dosage: 800 MG (RATE AT 200)
     Route: 042
     Dates: start: 20221028, end: 20221028
  6. ISATUXIMAB [Suspect]
     Active Substance: ISATUXIMAB
     Dosage: 770 MG (RATE AT 200)
     Route: 042
     Dates: start: 20221116, end: 20221116
  7. ISATUXIMAB [Suspect]
     Active Substance: ISATUXIMAB
     Dosage: 740 MG (RATE AT 200)
     Route: 042
     Dates: start: 20221209, end: 20221209
  8. ISATUXIMAB [Suspect]
     Active Substance: ISATUXIMAB
     Dosage: 760 MG
     Route: 042
     Dates: start: 20230330, end: 20230330
  9. ISATUXIMAB [Suspect]
     Active Substance: ISATUXIMAB
     Dosage: 780 MG
     Route: 042
     Dates: start: 20230413, end: 20230413
  10. ISATUXIMAB [Suspect]
     Active Substance: ISATUXIMAB
     Dosage: 720 MG
     Route: 042
     Dates: start: 20221229, end: 20221229
  11. ISATUXIMAB [Suspect]
     Active Substance: ISATUXIMAB
     Dosage: 800 MG
     Route: 042
     Dates: start: 20230621, end: 20230621
  12. ISATUXIMAB [Suspect]
     Active Substance: ISATUXIMAB
     Dosage: 740 MG
     Route: 042
     Dates: start: 20230818, end: 20230818
  13. ISATUXIMAB [Suspect]
     Active Substance: ISATUXIMAB
     Dosage: 760 MG
     Route: 042
     Dates: start: 20230901, end: 20230901
  14. ISATUXIMAB [Suspect]
     Active Substance: ISATUXIMAB
     Dosage: 780 MG
     Route: 042
     Dates: start: 20230915, end: 20230915
  15. POMALIDOMIDE [Suspect]
     Active Substance: POMALIDOMIDE
     Indication: Plasma cell myeloma refractory
     Dosage: 4 MG, QD
     Route: 048
     Dates: start: 20220922, end: 20221012
  16. POMALIDOMIDE [Suspect]
     Active Substance: POMALIDOMIDE
     Dosage: 3 MG, QD
     Route: 048
     Dates: start: 20221028, end: 20221103
  17. POMALIDOMIDE [Suspect]
     Active Substance: POMALIDOMIDE
     Dosage: 3 MG, QD
     Route: 048
     Dates: start: 20221116, end: 20221129
  18. POMALIDOMIDE [Suspect]
     Active Substance: POMALIDOMIDE
     Dosage: 3 MG, QD
     Route: 048
     Dates: start: 20221209, end: 20221223
  19. POMALIDOMIDE [Suspect]
     Active Substance: POMALIDOMIDE
     Dosage: 1 MG, QD
     Route: 048
     Dates: start: 20230112, end: 20230116
  20. POMALIDOMIDE [Suspect]
     Active Substance: POMALIDOMIDE
     Dosage: 1 MG, QD
     Route: 048
     Dates: start: 20230119, end: 20230131
  21. POMALIDOMIDE [Suspect]
     Active Substance: POMALIDOMIDE
     Dosage: 2 MG
     Route: 048
     Dates: start: 20221229, end: 20230104
  22. POMALIDOMIDE [Suspect]
     Active Substance: POMALIDOMIDE
     Dosage: 2 MG
     Route: 048
     Dates: start: 20230621, end: 20230702
  23. POMALIDOMIDE [Suspect]
     Active Substance: POMALIDOMIDE
     Dosage: 2 MG
     Route: 048
     Dates: start: 20230703, end: 20230703
  24. POMALIDOMIDE [Suspect]
     Active Substance: POMALIDOMIDE
     Dosage: 2 MG
     Route: 048
     Dates: start: 20230721, end: 20230810
  25. POMALIDOMIDE [Suspect]
     Active Substance: POMALIDOMIDE
     Dosage: 2 MG
     Route: 048
     Dates: start: 20230818, end: 20230907
  26. POMALIDOMIDE [Suspect]
     Active Substance: POMALIDOMIDE
     Dosage: 3 MG
     Route: 048
     Dates: start: 20230915, end: 20231004
  27. POMALIDOMIDE [Suspect]
     Active Substance: POMALIDOMIDE
     Dosage: 2 MG
     Route: 048
     Dates: start: 20231013, end: 20231102
  28. DEXAMETHASONE [Suspect]
     Active Substance: DEXAMETHASONE
     Indication: Plasma cell myeloma refractory
     Dosage: 40 MG
     Route: 042
     Dates: start: 20220922, end: 20220922
  29. DEXAMETHASONE [Suspect]
     Active Substance: DEXAMETHASONE
     Dosage: 40 MG
     Route: 042
     Dates: start: 20220929, end: 20220929
  30. DEXAMETHASONE [Suspect]
     Active Substance: DEXAMETHASONE
     Dosage: 40 MG
     Route: 042
     Dates: start: 20221006, end: 20221006
  31. DEXAMETHASONE [Suspect]
     Active Substance: DEXAMETHASONE
     Dosage: 40 MG
     Route: 042
     Dates: start: 20221021, end: 20221021
  32. DEXAMETHASONE [Suspect]
     Active Substance: DEXAMETHASONE
     Dosage: 40 MG, 1X
     Route: 042
     Dates: start: 20221028, end: 20221028
  33. DEXAMETHASONE [Suspect]
     Active Substance: DEXAMETHASONE
     Dosage: 39.75 MG, 1X
     Route: 048
     Dates: start: 20221104, end: 20221104
  34. DEXAMETHASONE [Suspect]
     Active Substance: DEXAMETHASONE
     Dosage: 40 MG, 1X
     Route: 042
     Dates: start: 20221116, end: 20221116
  35. DEXAMETHASONE [Suspect]
     Active Substance: DEXAMETHASONE
     Dosage: 39.75 MG, 1X
     Route: 048
     Dates: start: 20221123, end: 20221123
  36. DEXAMETHASONE [Suspect]
     Active Substance: DEXAMETHASONE
     Dosage: 20 MG, 1X
     Route: 048
     Dates: start: 20221209, end: 20221209
  37. DEXAMETHASONE [Suspect]
     Active Substance: DEXAMETHASONE
     Dosage: 20 MG, 1X
     Route: 048
     Dates: start: 20221216, end: 20221216
  38. DEXAMETHASONE [Suspect]
     Active Substance: DEXAMETHASONE
     Dosage: 20 MG
     Route: 042
     Dates: start: 20230112, end: 20230112
  39. DEXAMETHASONE [Suspect]
     Active Substance: DEXAMETHASONE
     Dosage: 20 MG
     Route: 048
     Dates: start: 20230119, end: 20230119
  40. DEXAMETHASONE [Suspect]
     Active Substance: DEXAMETHASONE
     Dosage: 20 MG
     Route: 042
     Dates: start: 20230126, end: 20230126
  41. DEXAMETHASONE [Suspect]
     Active Substance: DEXAMETHASONE
     Dosage: 20 MG
     Route: 048
     Dates: start: 20230202, end: 20230202
  42. DEXAMETHASONE [Suspect]
     Active Substance: DEXAMETHASONE
     Dosage: 10 MG
     Route: 042
     Dates: start: 20230330
  43. DEXAMETHASONE [Suspect]
     Active Substance: DEXAMETHASONE
     Dosage: 10 MG
     Route: 048
     Dates: start: 20230406
  44. DEXAMETHASONE [Suspect]
     Active Substance: DEXAMETHASONE
     Dosage: 10 MG
     Route: 042
     Dates: start: 20230413
  45. DEXAMETHASONE [Suspect]
     Active Substance: DEXAMETHASONE
     Dosage: 10 MG
     Route: 048
     Dates: start: 20230420
  46. DEXAMETHASONE [Suspect]
     Active Substance: DEXAMETHASONE
     Dosage: 20 MG
     Route: 042
     Dates: start: 20230621, end: 20230621
  47. DEXAMETHASONE [Suspect]
     Active Substance: DEXAMETHASONE
     Dosage: 40 MG
     Route: 048
     Dates: start: 20230628, end: 20230628
  48. DEXAMETHASONE [Suspect]
     Active Substance: DEXAMETHASONE
     Dosage: 40 MG
     Route: 042
     Dates: start: 20230706, end: 20230706
  49. DEXAMETHASONE [Suspect]
     Active Substance: DEXAMETHASONE
     Dosage: 20 MG
     Route: 048
     Dates: start: 20230714, end: 20230714
  50. DEXAMETHASONE [Suspect]
     Active Substance: DEXAMETHASONE
     Dosage: 20 MG
     Route: 042
     Dates: start: 20230721, end: 20230721
  51. DEXAMETHASONE [Suspect]
     Active Substance: DEXAMETHASONE
     Dosage: 20 MG
     Route: 048
     Dates: start: 20230728, end: 20230728
  52. DEXAMETHASONE [Suspect]
     Active Substance: DEXAMETHASONE
     Dosage: 20 MG
     Route: 042
     Dates: start: 20230804, end: 20230804
  53. DEXAMETHASONE [Suspect]
     Active Substance: DEXAMETHASONE
     Dosage: 20 MG
     Route: 048
     Dates: start: 20230811, end: 20230811
  54. DEXAMETHASONE [Suspect]
     Active Substance: DEXAMETHASONE
     Dosage: 20 MG
     Route: 042
     Dates: start: 20230818, end: 20230818
  55. DEXAMETHASONE [Suspect]
     Active Substance: DEXAMETHASONE
     Dosage: 20 MG
     Route: 048
     Dates: start: 20230825, end: 20230825
  56. DEXAMETHASONE [Suspect]
     Active Substance: DEXAMETHASONE
     Dosage: 20 MG
     Route: 042
     Dates: start: 20230901, end: 20230901
  57. DEXAMETHASONE [Suspect]
     Active Substance: DEXAMETHASONE
     Dosage: 20 MG
     Route: 048
     Dates: start: 20230908, end: 20230908
  58. DEXAMETHASONE [Suspect]
     Active Substance: DEXAMETHASONE
     Dosage: 20 MG
     Route: 042
     Dates: start: 20230915, end: 20230915
  59. DEXAMETHASONE [Suspect]
     Active Substance: DEXAMETHASONE
     Dosage: 20 MG
     Route: 048
     Dates: start: 20230922, end: 20230922
  60. DEXAMETHASONE [Suspect]
     Active Substance: DEXAMETHASONE
     Dosage: 20 MG
     Route: 042
     Dates: start: 20230929, end: 20230929
  61. DEXAMETHASONE [Suspect]
     Active Substance: DEXAMETHASONE
     Dosage: 20 MG
     Route: 048
     Dates: start: 20231006, end: 20231006
  62. OMEPRAZOLE SODIUM [Concomitant]
     Active Substance: OMEPRAZOLE SODIUM
     Indication: Prophylaxis
     Dosage: 40 MG
     Route: 041
     Dates: start: 20221116, end: 20221116
  63. OMEPRAZOLE SODIUM [Concomitant]
     Active Substance: OMEPRAZOLE SODIUM
     Dosage: 40 MG
     Route: 041
     Dates: start: 20221006, end: 20221006
  64. OMEPRAZOLE SODIUM [Concomitant]
     Active Substance: OMEPRAZOLE SODIUM
     Dosage: 40 MG
     Route: 041
     Dates: start: 20221021, end: 20221021
  65. OMEPRAZOLE SODIUM [Concomitant]
     Active Substance: OMEPRAZOLE SODIUM
     Dosage: 40 MG
     Route: 041
     Dates: start: 20221028, end: 20221028
  66. OMEPRAZOLE SODIUM [Concomitant]
     Active Substance: OMEPRAZOLE SODIUM
     Dosage: 40 MG
     Route: 041
     Dates: start: 20220923, end: 20220923
  67. ACETAMINOPHEN [Concomitant]
     Active Substance: ACETAMINOPHEN
     Indication: Prophylaxis
     Dosage: UNK
     Route: 048
     Dates: start: 20221006, end: 20221006
  68. ACETAMINOPHEN [Concomitant]
     Active Substance: ACETAMINOPHEN
     Dosage: UNK
     Route: 048
     Dates: start: 20220929, end: 20220929
  69. ACETAMINOPHEN [Concomitant]
     Active Substance: ACETAMINOPHEN
     Dosage: UNK
     Route: 048
     Dates: start: 20221021, end: 20221021
  70. ACETAMINOPHEN [Concomitant]
     Active Substance: ACETAMINOPHEN
     Dosage: UNK
     Route: 048
     Dates: start: 20221028, end: 20221028
  71. DIPHENHYDRAMINE [Concomitant]
     Active Substance: DIPHENHYDRAMINE
     Indication: Prophylaxis
     Dosage: 40 MG
     Route: 030
     Dates: start: 20220923, end: 20220923
  72. DIPHENHYDRAMINE [Concomitant]
     Active Substance: DIPHENHYDRAMINE
     Dosage: UNK
     Route: 030
     Dates: start: 20220929, end: 20220929
  73. DIPHENHYDRAMINE [Concomitant]
     Active Substance: DIPHENHYDRAMINE
     Dosage: UNK
     Route: 030
     Dates: start: 20221006, end: 20221006
  74. DIPHENHYDRAMINE [Concomitant]
     Active Substance: DIPHENHYDRAMINE
     Dosage: 40 MG, 1X
     Route: 030
     Dates: start: 20221116, end: 20221116
  75. DIPHENHYDRAMINE [Concomitant]
     Active Substance: DIPHENHYDRAMINE
     Dosage: 40 MG, 1X
     Route: 030
     Dates: start: 20221209, end: 20221209
  76. DIPHENHYDRAMINE [Concomitant]
     Active Substance: DIPHENHYDRAMINE
     Dosage: 40 MG
     Route: 042
     Dates: start: 20221229, end: 20221229
  77. DIPHENHYDRAMINE [Concomitant]
     Active Substance: DIPHENHYDRAMINE
     Dosage: 40 MG
     Route: 030
     Dates: start: 20220922, end: 20220922
  78. DIPHENHYDRAMINE [Concomitant]
     Active Substance: DIPHENHYDRAMINE
     Dosage: UNK
     Route: 030
     Dates: start: 20221021, end: 20221021
  79. DIPHENHYDRAMINE [Concomitant]
     Active Substance: DIPHENHYDRAMINE
     Dosage: UNK
     Route: 030
     Dates: start: 20221028, end: 20221028
  80. DIPHENHYDRAMINE [Concomitant]
     Active Substance: DIPHENHYDRAMINE
     Dosage: UNK
     Route: 042
     Dates: start: 20221229, end: 20221229
  81. DIPHENHYDRAMINE [Concomitant]
     Active Substance: DIPHENHYDRAMINE
     Dosage: UNK
     Route: 030
     Dates: start: 20230112, end: 20230112
  82. MONTELUKAST SODIUM [Concomitant]
     Active Substance: MONTELUKAST SODIUM
     Indication: Prophylaxis
     Dosage: UNK
     Route: 048
     Dates: start: 20220922, end: 20220922
  83. MONTELUKAST SODIUM [Concomitant]
     Active Substance: MONTELUKAST SODIUM
     Dosage: UNK
     Route: 048
     Dates: start: 20220929, end: 20220929
  84. MONTELUKAST SODIUM [Concomitant]
     Active Substance: MONTELUKAST SODIUM
     Dosage: UNK
     Route: 048
     Dates: start: 20221229, end: 20221229
  85. MONTELUKAST SODIUM [Concomitant]
     Active Substance: MONTELUKAST SODIUM
     Dosage: UNK
     Route: 048
     Dates: start: 20230112, end: 20230112
  86. PANTOPRAZOLE SODIUM [Concomitant]
     Active Substance: PANTOPRAZOLE SODIUM
     Indication: Prophylaxis
     Dosage: UNK
     Route: 048
     Dates: start: 20221031
  87. PANTOPRAZOLE SODIUM [Concomitant]
     Active Substance: PANTOPRAZOLE SODIUM
     Dosage: 40 MG
     Route: 048
     Dates: start: 20221229, end: 20221229
  88. PANTOPRAZOLE SODIUM [Concomitant]
     Active Substance: PANTOPRAZOLE SODIUM
     Dosage: 40 MG
     Route: 048
     Dates: start: 20230330, end: 20230330
  89. PANTOPRAZOLE SODIUM [Concomitant]
     Active Substance: PANTOPRAZOLE SODIUM
     Dosage: 40 MG
     Route: 048
     Dates: start: 20230413, end: 20230413
  90. PANTOPRAZOLE SODIUM [Concomitant]
     Active Substance: PANTOPRAZOLE SODIUM
     Dosage: 40 MG
     Route: 041
     Dates: start: 20230203, end: 20230203
  91. PANTOPRAZOLE SODIUM [Concomitant]
     Active Substance: PANTOPRAZOLE SODIUM
     Dosage: 40 MG
     Route: 048
     Dates: start: 20230210, end: 20230210
  92. PANTOPRAZOLE SODIUM [Concomitant]
     Active Substance: PANTOPRAZOLE SODIUM
     Dosage: 40 MG
     Route: 048
     Dates: start: 20230330, end: 20230330
  93. PANTOPRAZOLE SODIUM [Concomitant]
     Active Substance: PANTOPRAZOLE SODIUM
     Dosage: 40 MG
     Route: 048
     Dates: start: 20230413, end: 20230413
  94. PANTOPRAZOLE SODIUM [Concomitant]
     Active Substance: PANTOPRAZOLE SODIUM
     Dosage: 40 MG
     Route: 048
     Dates: start: 20230621, end: 20230621
  95. PANTOPRAZOLE SODIUM [Concomitant]
     Active Substance: PANTOPRAZOLE SODIUM
     Dosage: UNK
     Route: 048
     Dates: start: 20230818, end: 20230818
  96. PANTOPRAZOLE SODIUM [Concomitant]
     Active Substance: PANTOPRAZOLE SODIUM
     Dosage: UNK
     Route: 048
     Dates: start: 20230901, end: 20230901
  97. PANTOPRAZOLE SODIUM [Concomitant]
     Active Substance: PANTOPRAZOLE SODIUM
     Dosage: UNK
     Route: 048
     Dates: start: 20230915, end: 20230915
  98. ACETAMINOPHEN [Concomitant]
     Active Substance: ACETAMINOPHEN
     Indication: Prophylaxis
     Dosage: 0.9 G, 1X
     Route: 048
     Dates: start: 20221116, end: 20221116
  99. BENZBROMARONE [Concomitant]
     Active Substance: BENZBROMARONE
     Dosage: 50 MG
     Route: 048
     Dates: start: 20220922, end: 20221028
  100. VALACYCLOVIR HYDROCHLORIDE [Concomitant]
     Active Substance: VALACYCLOVIR HYDROCHLORIDE
     Dosage: 0.6 G
     Route: 048
     Dates: start: 20220922, end: 20221028
  101. PROMETHAZINE HYDROCHLORIDE [Concomitant]
     Active Substance: PROMETHAZINE HYDROCHLORIDE
     Dosage: 25 MG
     Route: 030
     Dates: start: 20220922, end: 20220922
  102. CEFACLOR [CEFACLOR MONOHYDRATE] [Concomitant]
     Dosage: 750 MG
     Route: 048
     Dates: start: 20220926, end: 20220926
  103. CEFACLOR [CEFACLOR MONOHYDRATE] [Concomitant]
     Dosage: 750 MG
     Route: 048
     Dates: start: 20230202, end: 20230210
  104. CEFACLOR [CEFACLOR MONOHYDRATE] [Concomitant]
     Dosage: 0.75 G, QD
     Route: 048
     Dates: start: 20230118, end: 20230123
  105. CEFACLOR [CEFACLOR MONOHYDRATE] [Concomitant]
     Dosage: 0.75 G
     Route: 048
     Dates: start: 20220927, end: 20220928
  106. CEFTAZIDIME [Concomitant]
     Active Substance: CEFTAZIDIME
     Dosage: 2 G
     Route: 041
     Dates: start: 20220928, end: 20220928
  107. CEFTAZIDIME [Concomitant]
     Active Substance: CEFTAZIDIME
     Dosage: 4 UNK
     Route: 041
     Dates: start: 20221020, end: 20221028
  108. CEFTAZIDIME [Concomitant]
     Active Substance: CEFTAZIDIME
     Dosage: UNK
     Route: 041
     Dates: start: 20221110, end: 20221116
  109. CEFTAZIDIME [Concomitant]
     Active Substance: CEFTAZIDIME
     Dosage: 4 G
     Route: 048
     Dates: start: 20220929, end: 20220929
  110. CEFOPERAZONE SODIUM\SULBACTAM SODIUM [Concomitant]
     Active Substance: CEFOPERAZONE SODIUM\SULBACTAM SODIUM
     Dosage: 3 G
     Route: 041
     Dates: start: 20220929, end: 20220929
  111. CEFOPERAZONE SODIUM\SULBACTAM SODIUM [Concomitant]
     Active Substance: CEFOPERAZONE SODIUM\SULBACTAM SODIUM
     Dosage: 6 G
     Route: 041
     Dates: start: 20220930, end: 20221019
  112. CEFOPERAZONE SODIUM\SULBACTAM SODIUM [Concomitant]
     Active Substance: CEFOPERAZONE SODIUM\SULBACTAM SODIUM
     Dosage: 3 G
     Route: 041
     Dates: start: 20230114, end: 20230114
  113. CEFOPERAZONE SODIUM\SULBACTAM SODIUM [Concomitant]
     Active Substance: CEFOPERAZONE SODIUM\SULBACTAM SODIUM
     Dosage: 6 G
     Route: 041
     Dates: start: 20230115, end: 20230116
  114. ELTROMBOPAG OLAMINE [Concomitant]
     Active Substance: ELTROMBOPAG OLAMINE
     Dosage: UNK
     Route: 048
     Dates: start: 20021010, end: 20221011
  115. ELTROMBOPAG OLAMINE [Concomitant]
     Active Substance: ELTROMBOPAG OLAMINE
     Dosage: UNK
     Route: 048
     Dates: start: 20221012, end: 20221031
  116. ELTROMBOPAG OLAMINE [Concomitant]
     Active Substance: ELTROMBOPAG OLAMINE
     Dosage: 50 MG
     Route: 048
     Dates: start: 20221201, end: 20221205
  117. ELTROMBOPAG OLAMINE [Concomitant]
     Active Substance: ELTROMBOPAG OLAMINE
     Dosage: 75 MG
     Route: 048
     Dates: start: 20221206, end: 20221214
  118. FUROSEMIDE [Concomitant]
     Active Substance: FUROSEMIDE
     Dosage: 20 MG, INTRAVENOUS BOLUS
     Route: 040
     Dates: start: 20221010, end: 20221010
  119. FUROSEMIDE [Concomitant]
     Active Substance: FUROSEMIDE
     Dosage: 20 MG, IV BOLUS
     Route: 040
     Dates: start: 20221013, end: 20221017
  120. VORICONAZOLE [Concomitant]
     Active Substance: VORICONAZOLE
     Dosage: 0.4 G
     Route: 041
     Dates: start: 20221125, end: 20221209
  121. PHOSPHOLIPID [Concomitant]
     Active Substance: PHOSPHOLIPID
     Dosage: 0.684 G
     Route: 048
     Dates: start: 20221127, end: 20221127
  122. PHOSPHOLIPID [Concomitant]
     Active Substance: PHOSPHOLIPID
     Dosage: UNK
     Route: 048
     Dates: start: 20221002, end: 20221031
  123. METOCLOPRAMIDE HYDROCHLORIDE [Concomitant]
     Active Substance: METOCLOPRAMIDE HYDROCHLORIDE
     Dosage: 10 MG
     Route: 040
     Dates: start: 20221127, end: 20221127
  124. FLUCONAZOLE [Concomitant]
     Active Substance: FLUCONAZOLE
     Dosage: 200 MG
     Route: 048
     Dates: start: 20221212, end: 20221219
  125. FLUCONAZOLE [Concomitant]
     Active Substance: FLUCONAZOLE
     Dosage: 200 MG, QD
     Route: 048
     Dates: start: 20230112, end: 20230130
  126. FLUCONAZOLE [Concomitant]
     Active Substance: FLUCONAZOLE
     Dosage: 200 UNK
     Route: 048
     Dates: start: 20221227, end: 20230204
  127. CALCIUM CARBONATE [Concomitant]
     Active Substance: CALCIUM CARBONATE
     Indication: Prophylaxis
     Dosage: 1.5 G
     Route: 048
     Dates: start: 20221203, end: 20221203
  128. CALCIUM CARBONATE [Concomitant]
     Active Substance: CALCIUM CARBONATE
     Dosage: 2 OTHER, ORAL
     Route: 048
     Dates: start: 20230125, end: 20230224
  129. OXYGEN [Concomitant]
     Active Substance: OXYGEN
     Dosage: UNK
     Dates: start: 20220922, end: 20220922
  130. HUMAN RED BLOOD CELL [Concomitant]
     Active Substance: HUMAN RED BLOOD CELL
     Dosage: UNK
     Route: 041
     Dates: start: 20221001, end: 20221001
  131. HUMAN RED BLOOD CELL [Concomitant]
     Active Substance: HUMAN RED BLOOD CELL
     Dosage: 3 U
     Route: 041
     Dates: start: 20221001, end: 20221001
  132. HUMAN RED BLOOD CELL [Concomitant]
     Active Substance: HUMAN RED BLOOD CELL
     Dosage: 2 U
     Route: 041
     Dates: start: 20230203, end: 20230203
  133. HUMAN RED BLOOD CELL [Concomitant]
     Active Substance: HUMAN RED BLOOD CELL
     Dosage: 2 U
     Route: 041
     Dates: start: 20230210, end: 20230210
  134. RED BLOOD CELL TRANSFUSION [Concomitant]
     Dosage: 2 U
     Route: 041
     Dates: start: 20220930, end: 20220930
  135. RED BLOOD CELL TRANSFUSION [Concomitant]
     Dosage: 2 U
     Route: 041
     Dates: start: 20221013, end: 20221013
  136. RED BLOOD CELL TRANSFUSION [Concomitant]
     Dosage: 3 U
     Route: 041
     Dates: start: 20221001, end: 20221001
  137. RED BLOOD CELL TRANSFUSION [Concomitant]
     Dosage: 2 U
     Route: 041
     Dates: start: 20221115, end: 20221115
  138. RED BLOOD CELL TRANSFUSION [Concomitant]
     Dosage: 1.5 U
     Route: 041
     Dates: start: 20221208, end: 20221208
  139. HUMAN IMMUNOGLOBULIN G [Concomitant]
     Active Substance: HUMAN IMMUNOGLOBULIN G
     Dosage: 5 G
     Route: 041
     Dates: start: 20221001, end: 20221001
  140. LACTULOSE [Concomitant]
     Active Substance: LACTULOSE
     Dosage: UNK
     Route: 048
     Dates: start: 20221001, end: 20221001
  141. VANCOMYCIN HYDROCHLORIDE [Concomitant]
     Active Substance: VANCOMYCIN HYDROCHLORIDE
     Dosage: UNK
     Route: 041
     Dates: start: 20221004, end: 20221019
  142. PEGYLATED RECOMBINANT HUMAN GRANULOCYTE COLONY STIMULATING FACTOR [Concomitant]
     Dosage: UNK
     Route: 058
     Dates: start: 20221007, end: 20221012
  143. PEGYLATED RECOMBINANT HUMAN GRANULOCYTE COLONY STIMULATING FACTOR [Concomitant]
     Dosage: UNK
     Route: 058
     Dates: start: 20221013, end: 20221022
  144. PEGYLATED RECOMBINANT HUMAN GRANULOCYTE COLONY STIMULATING FACTOR [Concomitant]
     Dosage: UNK
     Route: 058
     Dates: start: 20221031, end: 20221031
  145. PEGYLATED RECOMBINANT HUMAN GRANULOCYTE COLONY STIMULATING FACTOR [Concomitant]
     Dosage: UNK
     Route: 058
     Dates: start: 20230817, end: 20230817
  146. PLATELETS [Concomitant]
     Active Substance: HUMAN PLATELET, ALLOGENIC
     Indication: Prophylaxis
     Dosage: 2 U
     Route: 041
     Dates: start: 20221013, end: 20221013
  147. PLATELETS [Concomitant]
     Active Substance: HUMAN PLATELET, ALLOGENIC
     Dosage: 1 UNK
     Route: 041
     Dates: start: 20221017, end: 20221017
  148. PLATELETS [Concomitant]
     Active Substance: HUMAN PLATELET, ALLOGENIC
     Dosage: 1 U
     Route: 041
     Dates: start: 20221228, end: 20221228
  149. PLATELETS [Concomitant]
     Active Substance: HUMAN PLATELET, ALLOGENIC
     Dosage: 1 U
     Route: 041
     Dates: start: 20230203, end: 20230203
  150. PLATELETS [Concomitant]
     Active Substance: HUMAN PLATELET, ALLOGENIC
     Dosage: 1 UNK
     Route: 041
     Dates: start: 20230211, end: 20230211
  151. ETHAMSYLATE [Concomitant]
     Active Substance: ETHAMSYLATE
     Indication: Prophylaxis
     Dosage: 0.5 G
     Route: 041
     Dates: start: 20221013, end: 20221028
  152. ETHAMSYLATE [Concomitant]
     Active Substance: ETHAMSYLATE
     Dosage: 1 G
     Route: 041
     Dates: start: 20230201, end: 20230205
  153. ETHAMSYLATE [Concomitant]
     Active Substance: ETHAMSYLATE
     Dosage: UNK
  154. ALBUMIN HUMAN [Concomitant]
     Active Substance: ALBUMIN HUMAN
     Dosage: 10 G
     Route: 041
     Dates: start: 20221013, end: 20221019
  155. ALBUMIN HUMAN [Concomitant]
     Active Substance: ALBUMIN HUMAN
     Dosage: 10 G
     Route: 041
     Dates: start: 20230203, end: 20230208
  156. AVATROMBOPAG [Concomitant]
     Active Substance: AVATROMBOPAG
     Dosage: 60 MG
     Route: 048
     Dates: start: 20221215, end: 20221220
  157. AVATROMBOPAG [Concomitant]
     Active Substance: AVATROMBOPAG
     Dosage: 60 MG
     Route: 048
     Dates: start: 20221224, end: 20230307
  158. AVATROMBOPAG [Concomitant]
     Active Substance: AVATROMBOPAG
     Dosage: 60 MG, QD
     Route: 048
     Dates: start: 20230112, end: 20230129
  159. AVATROMBOPAG [Concomitant]
     Active Substance: AVATROMBOPAG
     Dosage: 60 MG
     Route: 048
     Dates: start: 20230206, end: 20230206
  160. AVATROMBOPAG [Concomitant]
     Active Substance: AVATROMBOPAG
     Dosage: 60 MG
     Route: 048
     Dates: start: 20230215, end: 20230329
  161. AVATROMBOPAG [Concomitant]
     Active Substance: AVATROMBOPAG
     Dosage: UNK
     Route: 048
     Dates: start: 20230330, end: 20230809
  162. AVATROMBOPAG [Concomitant]
     Active Substance: AVATROMBOPAG
     Dosage: UNK
     Route: 048
     Dates: start: 20230810, end: 20230817
  163. AVATROMBOPAG [Concomitant]
     Active Substance: AVATROMBOPAG
     Dosage: UNK
     Route: 048
     Dates: start: 20230818
  164. DEXAMETHASONE SODIUM PHOSPHATE [Concomitant]
     Active Substance: DEXAMETHASONE PHOSPHATE\DEXAMETHASONE SODIUM PHOSPHATE
     Indication: Prophylaxis
     Dosage: 5 MG
     Route: 042
     Dates: start: 20230203, end: 20230203
  165. DEXAMETHASONE SODIUM PHOSPHATE [Concomitant]
     Active Substance: DEXAMETHASONE PHOSPHATE\DEXAMETHASONE SODIUM PHOSPHATE
     Dosage: 5 MG
     Route: 041
     Dates: start: 20221001, end: 20221001
  166. DEXAMETHASONE SODIUM PHOSPHATE [Concomitant]
     Active Substance: DEXAMETHASONE PHOSPHATE\DEXAMETHASONE SODIUM PHOSPHATE
     Dosage: 5 MG
     Route: 041
     Dates: start: 20221007, end: 20221007
  167. DEXAMETHASONE SODIUM PHOSPHATE [Concomitant]
     Active Substance: DEXAMETHASONE PHOSPHATE\DEXAMETHASONE SODIUM PHOSPHATE
     Dosage: 5 MG
     Route: 041
     Dates: start: 20221208, end: 20221208
  168. DEXAMETHASONE SODIUM PHOSPHATE [Concomitant]
     Active Substance: DEXAMETHASONE PHOSPHATE\DEXAMETHASONE SODIUM PHOSPHATE
     Dosage: 5 MG
     Route: 041
     Dates: start: 20221021, end: 20221021
  169. GLUTATHIONE [Concomitant]
     Active Substance: GLUTATHIONE
     Dosage: 0.6 G
     Route: 048
     Dates: start: 20230213, end: 20230213
  170. GLUTATHIONE [Concomitant]
     Active Substance: GLUTATHIONE
     Dosage: 0.9 G
     Route: 048
     Dates: start: 20230214, end: 20230307
  171. GLUTATHIONE [Concomitant]
     Active Substance: GLUTATHIONE
     Dosage: 0.9 G
     Route: 048
     Dates: start: 202303, end: 202303
  172. MAGNESIUM ISOGLYCYRRHIZINATE [Concomitant]
     Active Substance: MAGNESIUM ISOGLYCYRRHIZINATE
     Dosage: 150 MG
     Route: 041
     Dates: start: 20230203, end: 20230215
  173. AMBROXOL HYDROCHLORIDE [Concomitant]
     Active Substance: AMBROXOL HYDROCHLORIDE
     Dosage: 60 MG
     Route: 048
     Dates: start: 20230215, end: 20230215
  174. HEROMBOPAG OLAMINE [Concomitant]
     Dosage: 2.5 MG
     Route: 048
     Dates: start: 20230308, end: 20230329
  175. LIDOCAINE HYDROCHLORIDE [Concomitant]
     Active Substance: DEXTROSE MONOHYDRATE\EPINEPHRINE\EPINEPHRINE BITARTRATE\LIDOCAINE\LIDOCAINE HYDROCHLORIDE\LIDOCAINE
     Dosage: 5 ML
     Route: 058
     Dates: start: 20221004, end: 20221004
  176. LIDOCAINE HYDROCHLORIDE [Concomitant]
     Active Substance: DEXTROSE MONOHYDRATE\EPINEPHRINE\EPINEPHRINE BITARTRATE\LIDOCAINE\LIDOCAINE HYDROCHLORIDE\LIDOCAINE
     Dosage: 5 ML
     Route: 058
     Dates: start: 20221028, end: 20221028
  177. LIDOCAINE HYDROCHLORIDE [Concomitant]
     Active Substance: DEXTROSE MONOHYDRATE\EPINEPHRINE\EPINEPHRINE BITARTRATE\LIDOCAINE\LIDOCAINE HYDROCHLORIDE\LIDOCAINE
     Dosage: 5 ML
     Route: 058
     Dates: start: 20230111, end: 20230111
  178. LIDOCAINE HYDROCHLORIDE [Concomitant]
     Active Substance: DEXTROSE MONOHYDRATE\EPINEPHRINE\EPINEPHRINE BITARTRATE\LIDOCAINE\LIDOCAINE HYDROCHLORIDE\LIDOCAINE
     Dosage: 5 ML
     Route: 058
     Dates: start: 20230621, end: 20230621
  179. POTASSIUM CHLORIDE [Concomitant]
     Active Substance: POTASSIUM CHLORIDE
     Dosage: 10 ML, QD
     Route: 048
     Dates: start: 20230202, end: 20230208
  180. COMPOUND GLYCYRRHIZA MIXTURE SOLUTION [Concomitant]
     Dosage: UNK
     Route: 048
     Dates: start: 20230704, end: 20230713
  181. METHYLPREDNISOLONE [Concomitant]
     Active Substance: METHYLPREDNISOLONE
     Indication: Prophylaxis
     Dosage: UNK
     Route: 041
     Dates: start: 20220923, end: 20220923
  182. FOLIC ACID [Concomitant]
     Active Substance: FOLIC ACID
     Dosage: 30 MG
     Route: 048
     Dates: start: 20230621, end: 20230707

REACTIONS (37)
  - Platelet count decreased [Not Recovered/Not Resolved]
  - Neutrophil count decreased [Recovered/Resolved]
  - Anaemia [Not Recovered/Not Resolved]
  - White blood cell count decreased [Recovered/Resolved]
  - White blood cell count decreased [Recovered/Resolved]
  - Infusion related reaction [Recovered/Resolved]
  - Neutrophil count decreased [Recovered/Resolved]
  - Neutrophil count decreased [Recovered/Resolved]
  - White blood cell count decreased [Recovered/Resolved]
  - Oedema peripheral [Recovered/Resolved]
  - White blood cell count decreased [Recovered/Resolved]
  - Neutrophil count decreased [Recovered/Resolved]
  - Neutrophil count decreased [Recovered/Resolved]
  - Hypoproteinaemia [Recovered/Resolved]
  - Hypoproteinaemia [Recovered/Resolved]
  - Hypokalaemia [Recovered/Resolved]
  - White blood cell count decreased [Recovered/Resolved]
  - White blood cell count decreased [Recovered/Resolved]
  - Hypoproteinaemia [Recovered/Resolved]
  - Hiccups [Recovered/Resolved]
  - Constipation [Recovered/Resolved]
  - Neutrophil count decreased [Recovered/Resolved]
  - Diarrhoea [Recovered/Resolved]
  - Oedema peripheral [Recovered/Resolved]
  - White blood cell count decreased [Recovered/Resolved]
  - Hypokalaemia [Recovered/Resolved]
  - White blood cell count decreased [Recovered/Resolved]
  - White blood cell count decreased [Recovered/Resolved]
  - White blood cell count decreased [Recovered/Resolved]
  - Hypoproteinaemia [Recovered/Resolved]
  - Neutrophil count decreased [Recovered/Resolved]
  - Hepatic function abnormal [Recovered/Resolved]
  - Neutrophil count decreased [Recovered/Resolved]
  - Hypocalcaemia [Recovered/Resolved]
  - Hypocalcaemia [Recovered/Resolved]
  - Hepatic function abnormal [Recovered/Resolved]
  - Hepatic function abnormal [Recovered/Resolved]

NARRATIVE: CASE EVENT DATE: 20220922
